FAERS Safety Report 5796262-9 (Version None)
Quarter: 2008Q3

REPORT INFORMATION
  Report Type: 
  Country: None (occurrence: None)
  Receive Date: 20080701
  Receipt Date: 20080620
  Transmission Date: 20090109
  Serious: Yes (Hospitalization)
  Sender: FDA-Public Use
  Company Number: DE-BRISTOL-MYERS SQUIBB COMPANY-14160329

PATIENT
  Age: 56 Year
  Sex: Male

DRUGS (7)
  1. CETUXIMAB [Suspect]
     Indication: NON-SMALL CELL LUNG CANCER
     Route: 042
     Dates: start: 20080110, end: 20080410
  2. CARBOPLATIN [Suspect]
     Indication: NON-SMALL CELL LUNG CANCER
     Dosage: 1 DOSAGE FORM=AUC.
     Route: 042
     Dates: start: 20080110, end: 20080410
  3. DOCETAXEL [Suspect]
     Indication: NON-SMALL CELL LUNG CANCER
     Route: 042
     Dates: start: 20080110, end: 20080410
  4. UNACID [Concomitant]
     Indication: PROPHYLAXIS
     Dosage: 1 DOSAGE FORM=2 TABS
     Route: 048
     Dates: start: 20080417
  5. VOLTAREN [Concomitant]
     Indication: PAIN
     Dosage: CAPSULES
     Route: 048
     Dates: start: 20080417
  6. METOCLOPRAMIDE HYDROCHLORIDE [Concomitant]
     Indication: PROPHYLAXIS
     Dosage: 1 DOSAGE FORM = 30GTT;DROPS
     Route: 048
     Dates: start: 20080417
  7. MORPHINE SULFATE [Concomitant]
     Indication: PROPHYLAXIS
     Dosage: 30MG TABS
     Route: 048
     Dates: start: 20080417

REACTIONS (3)
  - ANAEMIA [None]
  - LEUKOPENIA [None]
  - THROMBOCYTOPENIA [None]
